FAERS Safety Report 15400822 (Version 1)
Quarter: 2018Q3

REPORT INFORMATION
  Report Type: Spontaneous
  Country: US (occurrence: US)
  Receive Date: 20180913
  Receipt Date: 20180913
  Transmission Date: 20181010
  Serious: Yes (Other)
  Sender: FDA-Public Use
  Company Number: None

PATIENT
  Age: 34 Year
  Sex: Male
  Weight: 105 kg

DRUGS (7)
  1. NOREPINEPHRINE INFUSION [Concomitant]
     Dates: start: 20180911, end: 20180913
  2. PROPOFOL INFUSION [Concomitant]
     Active Substance: PROPOFOL
     Dates: start: 20180911, end: 20180913
  3. FENTANYL CONTINUOUS INFUSION [Concomitant]
     Active Substance: FENTANYL
     Dates: start: 20180911, end: 20180913
  4. IMIPENEM?CILASTATIN [Concomitant]
     Active Substance: CILASTATIN SODIUM\IMIPENEM
     Dates: start: 20180909, end: 20180913
  5. SODIUM BICARBONATE INFUSION [Concomitant]
     Dates: start: 20180910, end: 20180913
  6. VANCOMYCIN [Concomitant]
     Active Substance: VANCOMYCIN
     Dates: start: 20180904, end: 20180911
  7. DEXMEDETOMIDINE. [Suspect]
     Active Substance: DEXMEDETOMIDINE
     Indication: SEDATION
     Dosage: ?          OTHER FREQUENCY:CONTINUOUS;?
     Route: 041
     Dates: start: 20180911, end: 20180913

REACTIONS (1)
  - Pyrexia [None]

NARRATIVE: CASE EVENT DATE: 20180913
